FAERS Safety Report 7423100-0 (Version None)
Quarter: 2011Q2

REPORT INFORMATION
  Report Type: 
  Country: None (occurrence: None)
  Receive Date: 20110419
  Receipt Date: 20110405
  Transmission Date: 20111010
  Serious: Yes (Death)
  Sender: FDA-Public Use
  Company Number: GB-BAUSCH-2011BL002259

PATIENT
  Age: 65 Year
  Sex: Male

DRUGS (8)
  1. DALTEPARIN SODIUM [Suspect]
     Indication: LUNG NEOPLASM MALIGNANT
     Dosage: DOSE UNIT:UNKNOWN
     Route: 065
     Dates: start: 20101220, end: 20110225
  2. DEXAMETHASONE [Suspect]
     Indication: PRODUCT USED FOR UNKNOWN INDICATION
     Route: 048
     Dates: end: 20110225
  3. PEMETREXED DISODIUM [Suspect]
     Indication: PRODUCT USED FOR UNKNOWN INDICATION
     Route: 042
     Dates: start: 20101221, end: 20110225
  4. APREPITANT [Suspect]
     Indication: PRODUCT USED FOR UNKNOWN INDICATION
     Route: 042
     Dates: start: 20110225, end: 20110225
  5. MST CONTINUS ^ASTA MEDICA^ [Suspect]
     Indication: PRODUCT USED FOR UNKNOWN INDICATION
     Route: 048
  6. ONDANSETRON [Suspect]
     Indication: PRODUCT USED FOR UNKNOWN INDICATION
     Route: 048
  7. ACETAMINOPHEN [Concomitant]
  8. CISPLATIN [Suspect]
     Indication: PRODUCT USED FOR UNKNOWN INDICATION
     Route: 042
     Dates: start: 20101221, end: 20110225

REACTIONS (3)
  - LARGE INTESTINE PERFORATION [None]
  - LUNG CANCER METASTATIC [None]
  - PERITONITIS [None]
